FAERS Safety Report 18849168 (Version 1)
Quarter: 2021Q1

REPORT INFORMATION
  Report Type: Spontaneous
  Country: RO (occurrence: RO)
  Receive Date: 20210204
  Receipt Date: 20210204
  Transmission Date: 20210419
  Serious: Yes (Death)
  Sender: FDA-Public Use
  Company Number: RO-ROCHE-2763425

PATIENT
  Age: 67 Year
  Sex: Male

DRUGS (1)
  1. ALECENSA [Suspect]
     Active Substance: ALECTINIB HYDROCHLORIDE
     Indication: LYMPHOMA
     Route: 048
     Dates: start: 202009

REACTIONS (1)
  - COVID-19 [Fatal]
